FAERS Safety Report 9357302 (Version 1)
Quarter: 2013Q2

REPORT INFORMATION
  Report Type: Spontaneous
  Country: BR (occurrence: BR)
  Receive Date: 20130620
  Receipt Date: 20130620
  Transmission Date: 20140414
  Serious: Yes (Other)
  Sender: FDA-Public Use
  Company Number: BR-JNJFOC-20130604911

PATIENT
  Age: 20 Month
  Sex: Male
  Weight: 11.98 kg

DRUGS (4)
  1. MICRONOR [Suspect]
     Indication: EXPOSURE DURING BREAST FEEDING
     Route: 063
     Dates: start: 201206, end: 20130602
  2. VITAMIN C [Concomitant]
     Route: 065
  3. FERROUS SULFATE [Concomitant]
     Route: 065
  4. VITAMIN B COMPLEX [Concomitant]
     Route: 065

REACTIONS (2)
  - Bronchitis [Not Recovered/Not Resolved]
  - Breast feeding [Recovered/Resolved]
